FAERS Safety Report 5505863-4 (Version None)
Quarter: 2007Q4

REPORT INFORMATION
  Report Type: 
  Country: None (occurrence: None)
  Receive Date: 20071102
  Receipt Date: 20071023
  Transmission Date: 20080405
  Serious: Yes (Other)
  Sender: FDA-Public Use
  Company Number: BR-PFIZER INC-2007090056

PATIENT
  Sex: Male
  Weight: 58 kg

DRUGS (5)
  1. SILDENAFIL (PAH) [Suspect]
     Indication: CARDIOMYOPATHY
     Route: 048
  2. ALDACTONE [Concomitant]
     Route: 048
  3. LASIX [Concomitant]
  4. COLCHICINE [Concomitant]
     Route: 048
  5. CAPOTEN [Concomitant]
     Route: 048

REACTIONS (4)
  - CARDIAC PACEMAKER INSERTION [None]
  - COUGH [None]
  - DYSPNOEA [None]
  - FATIGUE [None]
